FAERS Safety Report 5845926-7 (Version None)
Quarter: 2008Q3

REPORT INFORMATION
  Report Type: 
  Country: None (occurrence: None)
  Receive Date: 20080731
  Receipt Date: 20080609
  Transmission Date: 20090109
  Serious: No
  Sender: FDA-Public Use
  Company Number: US200805005576

PATIENT
  Age: 69 Year
  Sex: Female
  Weight: 108.4 kg

DRUGS (10)
  1. BYETTA [Suspect]
     Indication: GLUCOSE TOLERANCE IMPAIRED
     Dosage: 5 UG, 2/D, SUBCUTANEOUS ; 10 UG, 2/D, SUBCUTANEOUS ; 10 UG, 2/D, SUBCUTANEOUS
     Route: 058
     Dates: start: 20080301, end: 20080401
  2. BYETTA [Suspect]
     Indication: GLUCOSE TOLERANCE IMPAIRED
     Dosage: 5 UG, 2/D, SUBCUTANEOUS ; 10 UG, 2/D, SUBCUTANEOUS ; 10 UG, 2/D, SUBCUTANEOUS
     Route: 058
     Dates: start: 20080401
  3. BYETTA [Suspect]
     Indication: GLUCOSE TOLERANCE IMPAIRED
     Dosage: 5 UG, 2/D, SUBCUTANEOUS ; 10 UG, 2/D, SUBCUTANEOUS ; 10 UG, 2/D, SUBCUTANEOUS
     Route: 058
     Dates: start: 20080501
  4. SYNTHROID [Concomitant]
  5. FUROSEMIDE (FUROSEMIDE) [Concomitant]
  6. FISH OIL (FISH OIL) [Concomitant]
  7. OCUVITE (ASCORBIC ACID, RETINOL, TOCOPHEROL) [Concomitant]
  8. OSCAL (CALCIUM CARBONATE) [Concomitant]
  9. ASCORBIC ACID [Concomitant]
  10. BYETTA [Suspect]

REACTIONS (11)
  - COLD SWEAT [None]
  - DECREASED APPETITE [None]
  - DIARRHOEA [None]
  - DIZZINESS [None]
  - FEELING ABNORMAL [None]
  - FEELING COLD [None]
  - FLATULENCE [None]
  - INCORRECT DOSE ADMINISTERED [None]
  - MALAISE [None]
  - NAUSEA [None]
  - PRESYNCOPE [None]
